FAERS Safety Report 11403203 (Version 1)
Quarter: 2015Q3

REPORT INFORMATION
  Report Type: Spontaneous
  Country: US (occurrence: None)
  Receive Date: 20150812
  Receipt Date: 20150812
  Transmission Date: 20151125
  Serious: No
  Sender: FDA-Public Use
  Company Number: 1506USA003488

PATIENT
  Age: 66 Year
  Sex: Male

DRUGS (1)
  1. RAGWITEK [Suspect]
     Active Substance: AMBROSIA ARTEMISIIFOLIA POLLEN
     Route: 048
     Dates: start: 20150603

REACTIONS (2)
  - Drug administered to patient of inappropriate age [None]
  - No adverse event [None]

NARRATIVE: CASE EVENT DATE: 20150603
